FAERS Safety Report 8904466 (Version 2)
Quarter: 2013Q1

REPORT INFORMATION
  Report Type: Spontaneous
  Country: CN (occurrence: CN)
  Receive Date: 20121112
  Receipt Date: 20130111
  Transmission Date: 20140127
  Serious: Yes (Other)
  Sender: FDA-Public Use
  Company Number: CN-BAYER-2012-118106

PATIENT
  Age: 53 Year
  Sex: Female

DRUGS (1)
  1. CANESTEN PESSARY [Suspect]
     Indication: VULVOVAGINAL CANDIDIASIS
     Dosage: 1 DF, ONCE
     Route: 067
     Dates: start: 20121110

REACTIONS (5)
  - Nausea [None]
  - Vaginal haemorrhage [None]
  - Vaginal discharge [None]
  - Abdominal discomfort [None]
  - Wrong technique in drug usage process [None]
